FAERS Safety Report 7928878-5 (Version None)
Quarter: 2011Q4

REPORT INFORMATION
  Report Type: 
  Country: None (occurrence: None)
  Receive Date: 20111118
  Receipt Date: 20111104
  Transmission Date: 20120403
  Serious: Yes (Hospitalization)
  Sender: FDA-Public Use
  Company Number: ES-WATSON-2011-16987

PATIENT
  Age: 63 Year
  Sex: Male

DRUGS (2)
  1. PREDNISONE TAB [Suspect]
     Indication: AUTOIMMUNE HEPATITIS
     Dosage: 60 MG, DAILY
     Route: 065
  2. PREDNISONE TAB [Suspect]
     Indication: BILIARY CIRRHOSIS PRIMARY

REACTIONS (4)
  - MEDIASTINAL DISORDER [None]
  - LIPOMATOSIS [None]
  - DYSPNOEA [None]
  - CUSHINGOID [None]
